FAERS Safety Report 21719419 (Version 3)
Quarter: 2023Q1

REPORT INFORMATION
  Report Type: Spontaneous
  Country: US (occurrence: US)
  Receive Date: 20221213
  Receipt Date: 20230329
  Transmission Date: 20230417
  Serious: No
  Sender: FDA-Public Use
  Company Number: US-BRISTOL-MYERS SQUIBB COMPANY-2022-151812

PATIENT
  Age: 70 Year
  Sex: Female

DRUGS (4)
  1. POMALYST [Suspect]
     Active Substance: POMALIDOMIDE
     Indication: Neoplasm malignant
     Dosage: D 1-14 EVERY 21 DAYS
     Route: 048
     Dates: start: 20220822
  2. POMALYST [Suspect]
     Active Substance: POMALIDOMIDE
     Indication: Plasma cell myeloma
     Dosage: TAKE 1 CAPSULE BY MOUTH? DAILY DAYS  1-14 EVERY 21 DAYS
     Route: 048
     Dates: start: 20221026
  3. VELCADE [Concomitant]
     Active Substance: BORTEZOMIB
     Indication: Plasma cell myeloma
     Dosage: D 1, 4, 8, 11 AND 21D
     Route: 058
     Dates: start: 20220822
  4. DEXAMETHASONE [Concomitant]
     Active Substance: DEXAMETHASONE
     Indication: Plasma cell myeloma
     Dosage: D 1, 4, 8, 11D
     Route: 042
     Dates: start: 20220822

REACTIONS (3)
  - Product dose omission issue [Unknown]
  - Off label use [Unknown]
  - Product dose omission in error [Unknown]
